FAERS Safety Report 7206789-0 (Version None)
Quarter: 2010Q4

REPORT INFORMATION
  Report Type: 
  Country: None (occurrence: None)
  Receive Date: 20101217
  Receipt Date: 20101201
  Transmission Date: 20110411
  Serious: Yes (Other)
  Sender: FDA-Public Use
  Company Number: 1000017651

PATIENT
  Age: 56 Year
  Sex: Female

DRUGS (6)
  1. CELEXA [Suspect]
     Dosage: ORAL
     Route: 048
  2. AVALIDE (IRBESARTAN HYDROCHLORIDE) [Concomitant]
  3. AERIUS (DESLORATADINE) [Concomitant]
  4. ASPIRIN [Concomitant]
  5. PUFFERS (INHALANT NOS) [Concomitant]
  6. ZANTAC [Concomitant]

REACTIONS (6)
  - CONTUSION [None]
  - FEELING HOT [None]
  - MASS [None]
  - PAIN [None]
  - PYREXIA [None]
  - RASH [None]
